FAERS Safety Report 9630749 (Version 1)
Quarter: 2013Q4

REPORT INFORMATION
  Report Type: Spontaneous
  Country: US (occurrence: None)
  Receive Date: 20131016
  Receipt Date: 20131016
  Transmission Date: 20140711
  Serious: Yes (Hospitalization)
  Sender: FDA-Public Use
  Company Number: None

PATIENT
  Age: 72 Year
  Sex: Male

DRUGS (15)
  1. B12 [Concomitant]
  2. RANIBIZUMAB [Concomitant]
  3. EYLEA [Suspect]
     Indication: AGE-RELATED MACULAR DEGENERATION
     Dosage: 2.0MG, MONTHLY, 046
     Dates: start: 20120829, end: 20121003
  4. COLESTIPOL HCL [Concomitant]
  5. MAGNESIUM [Concomitant]
  6. PRESERVISION LUTEIN [Concomitant]
  7. POT CHLOR [Concomitant]
  8. DICYCLOMINE [Concomitant]
  9. FENOFIBRATE [Concomitant]
  10. LOPERAMIDE [Concomitant]
  11. DILTIAZEM [Concomitant]
  12. METOPROLOL [Concomitant]
  13. LOSARTAN [Concomitant]
  14. ASPIRIN [Concomitant]
  15. IRON [Concomitant]

REACTIONS (2)
  - Pneumonia aspiration [None]
  - Oesophageal food impaction [None]
